FAERS Safety Report 5918762-0 (Version None)
Quarter: 2008Q4

REPORT INFORMATION
  Report Type: 
  Country: None (occurrence: None)
  Receive Date: 20081015
  Receipt Date: 20080814
  Transmission Date: 20090506
  Serious: Yes (Hospitalization)
  Sender: FDA-Public Use
  Company Number: US-ASTRAZENECA-2008UW16147

PATIENT
  Age: 75 Year
  Sex: Male
  Weight: 67.6 kg

DRUGS (3)
  1. SYMBICORT [Suspect]
     Indication: EMPHYSEMA
     Dosage: 80/4.5 UG
     Route: 055
     Dates: start: 20080101
  2. LEVOTHYROXINE SODIUM [Concomitant]
  3. FOSAMAX PLUS D [Concomitant]

REACTIONS (2)
  - PNEUMONIA [None]
  - RASH [None]
